FAERS Safety Report 6263687-7 (Version None)
Quarter: 2009Q3

REPORT INFORMATION
  Report Type: 
  Country: None (occurrence: None)
  Receive Date: 20090708
  Receipt Date: 20090708
  Transmission Date: 20100115
  Serious: No
  Sender: FDA-Public Use
  Company Number: None

PATIENT
  Age: 48 Year
  Sex: Female
  Weight: 81.6475 kg

DRUGS (1)
  1. ZICAM [Suspect]
     Indication: NASOPHARYNGITIS
     Dosage: SWAB USED ONCE

REACTIONS (1)
  - ANOSMIA [None]
